FAERS Safety Report 17397871 (Version 1)
Quarter: 2020Q1

REPORT INFORMATION
  Report Type: Spontaneous
  Country: NO (occurrence: NO)
  Receive Date: 20200210
  Receipt Date: 20200210
  Transmission Date: 20200409
  Serious: Yes (Hospitalization)
  Sender: FDA-Public Use
  Company Number: NO-ASTRAZENECA-2020SE19013

PATIENT
  Age: 61 Year
  Sex: Male

DRUGS (9)
  1. FEVARIN [Concomitant]
     Active Substance: FLUVOXAMINE MALEATE
     Dosage: EVENING
     Route: 048
  2. BRILIQUE [Concomitant]
     Active Substance: TICAGRELOR
     Route: 048
  3. RAMIPRIL. [Concomitant]
     Active Substance: RAMIPRIL
     Route: 048
  4. METOPROLOL. [Concomitant]
     Active Substance: METOPROLOL
     Route: 048
  5. LITHIONIT [Concomitant]
     Active Substance: LITHIUM SULFATE
     Route: 048
  6. ZYPREXA [Concomitant]
     Active Substance: OLANZAPINE
     Dosage: EVENING
     Route: 048
  7. ATORVASTATIN [Concomitant]
     Active Substance: ATORVASTATIN
     Route: 048
  8. FORXIGA [Suspect]
     Active Substance: DAPAGLIFLOZIN
     Route: 048
  9. ALBYL-E [Concomitant]
     Active Substance: ASPIRIN\MAGNESIUM OXIDE
     Route: 048

REACTIONS (1)
  - Prerenal failure [Recovering/Resolving]

NARRATIVE: CASE EVENT DATE: 20191231
